FAERS Safety Report 4950503-6 (Version None)
Quarter: 2006Q1

REPORT INFORMATION
  Report Type: 
  Country: None (occurrence: None)
  Receive Date: 20060322
  Receipt Date: 20060308
  Transmission Date: 20060701
  Serious: Yes (Life-Threatening)
  Sender: FDA-Public Use
  Company Number: IT-GLAXOSMITHKLINE-B0415750A

PATIENT
  Age: 39 Year
  Sex: Female

DRUGS (1)
  1. AUGMENTIN '125' [Suspect]
     Indication: PROPHYLAXIS
     Route: 042
     Dates: start: 20060301, end: 20060301

REACTIONS (7)
  - DRUG EXPOSURE DURING PREGNANCY [None]
  - DYSPNOEA [None]
  - HYPOTENSION [None]
  - OEDEMA MOUTH [None]
  - ORAL DISCOMFORT [None]
  - PSYCHOMOTOR HYPERACTIVITY [None]
  - RASH GENERALISED [None]
